FAERS Safety Report 6232466-9 (Version None)
Quarter: 2009Q2

REPORT INFORMATION
  Report Type: 
  Country: None (occurrence: None)
  Receive Date: 20090615
  Receipt Date: 20090615
  Transmission Date: 20091009
  Serious: No
  Sender: FDA-Public Use
  Company Number: None

PATIENT
  Age: 65 Year
  Sex: Female
  Weight: 68.0396 kg

DRUGS (1)
  1. OMEPRAZOLE [Suspect]
     Dosage: 20MG DAILY ONE ORAL
     Route: 048

REACTIONS (4)
  - DIZZINESS [None]
  - IMPAIRED DRIVING ABILITY [None]
  - NAUSEA [None]
  - PRODUCT SUBSTITUTION ISSUE [None]
